FAERS Safety Report 6733434-0 (Version None)
Quarter: 2010Q2

REPORT INFORMATION
  Report Type: 
  Country: None (occurrence: None)
  Receive Date: 20100520
  Receipt Date: 20100514
  Transmission Date: 20101027
  Serious: Yes (Hospitalization)
  Sender: FDA-Public Use
  Company Number: FR-KINGPHARMUSA00001-K201000594

PATIENT
  Age: 79 Year
  Sex: Female

DRUGS (4)
  1. ALTACE [Suspect]
     Indication: ATRIAL FIBRILLATION
     Dosage: 10 MG, UNK
     Route: 048
     Dates: end: 20100211
  2. ALTACE [Suspect]
     Dosage: 10 MG, QD
     Route: 048
     Dates: start: 20100101
  3. SPIRONOLACTONE [Suspect]
     Dosage: UNK
     Route: 048
     Dates: end: 20100201
  4. DIGOXIN [Suspect]
     Indication: ATRIAL FIBRILLATION

REACTIONS (4)
  - CARDIOACTIVE DRUG LEVEL INCREASED [None]
  - FACIAL BONES FRACTURE [None]
  - FALL [None]
  - HYPERKALAEMIA [None]
